FAERS Safety Report 8762353 (Version 1)
Quarter: 2012Q4

REPORT INFORMATION
  Report Type: 
  Country: IE (occurrence: IE)
  Receive Date: 20120830
  Receipt Date: 20120830
  Transmission Date: 20130627
  Serious: Yes (Death, Other)
  Sender: FDA-Public Use
  Company Number: PHHY2012IE074883

PATIENT
  Age: 72 Year
  Sex: Female

DRUGS (4)
  1. METHOTREXATE [Suspect]
     Indication: AUTOIMMUNE ARTHRITIS
     Dosage: 15 mg, QW
  2. METHOTREXATE [Suspect]
     Indication: RHEUMATOID ARTHRITIS
  3. RITUXIMAB [Suspect]
     Indication: RHEUMATOID ARTHRITIS
  4. RITUXIMAB [Suspect]
     Indication: AUTOIMMUNE ARTHRITIS

REACTIONS (2)
  - Progressive multifocal leukoencephalopathy [Fatal]
  - Lymphopenia [Unknown]
